FAERS Safety Report 9132918 (Version 2)
Quarter: 2013Q1

REPORT INFORMATION
  Report Type: Spontaneous
  Country: GB (occurrence: GB)
  Receive Date: 20130301
  Receipt Date: 20130311
  Transmission Date: 20140127
  Serious: Yes (Other)
  Sender: FDA-Public Use
  Company Number: GB-ROCHE-1196734

PATIENT
  Age: 14 Year
  Sex: Female
  Weight: 72 kg

DRUGS (1)
  1. ROACCUTANE [Suspect]
     Indication: PRODUCT USED FOR UNKNOWN INDICATION
     Route: 048
     Dates: start: 20120709, end: 20121213

REACTIONS (2)
  - Self injurious behaviour [Not Recovered/Not Resolved]
  - Depressed mood [Not Recovered/Not Resolved]
